FAERS Safety Report 6805707-4 (Version None)
Quarter: 2010Q2

REPORT INFORMATION
  Report Type: 
  Country: None (occurrence: None)
  Receive Date: 20100628
  Receipt Date: 20080521
  Transmission Date: 20101027
  Serious: Yes (Hospitalization)
  Sender: FDA-Public Use
  Company Number: PFIZER INC-2008044224

PATIENT

DRUGS (1)
  1. SUTENT [Suspect]
     Indication: THYROID CANCER

REACTIONS (1)
  - PULMONARY HAEMORRHAGE [None]
